FAERS Safety Report 21819515 (Version 1)
Quarter: 2023Q1

REPORT INFORMATION
  Report Type: Spontaneous
  Country: US (occurrence: US)
  Receive Date: 20230104
  Receipt Date: 20230104
  Transmission Date: 20230418
  Serious: No
  Sender: FDA-Public Use
  Company Number: US-SA-SAC20230102000261

PATIENT
  Age: 36 Year
  Sex: Female

DRUGS (1)
  1. DUPIXENT [Suspect]
     Active Substance: DUPILUMAB
     Dosage: 300 MG; OTHER
     Route: 058
     Dates: start: 202001

REACTIONS (5)
  - Injection site discomfort [Unknown]
  - Chest pain [Unknown]
  - Muscle strain [Unknown]
  - Therapeutic response shortened [Unknown]
  - Pruritus [Unknown]

NARRATIVE: CASE EVENT DATE: 20221229
